FAERS Safety Report 7769806-5 (Version None)
Quarter: 2011Q3

REPORT INFORMATION
  Report Type: 
  Country: None (occurrence: None)
  Receive Date: 20110922
  Receipt Date: 20110404
  Transmission Date: 20111222
  Serious: No
  Sender: FDA-Public Use
  Company Number: US-ASTRAZENECA-2011SE18994

PATIENT
  Age: 50 Year
  Sex: Female
  Weight: 86.2 kg

DRUGS (7)
  1. SOMA [Concomitant]
  2. XANAX [Concomitant]
     Route: 048
  3. OXYCODONE HCL [Concomitant]
     Route: 048
  4. BUSPARS [Concomitant]
  5. SEROQUEL XR [Suspect]
     Route: 048
     Dates: start: 20101201
  6. GENERIC EFFEXOR [Concomitant]
     Route: 048
  7. SEROQUEL XR [Suspect]
     Indication: BIPOLAR DISORDER
     Route: 048
     Dates: start: 20090101, end: 20101201

REACTIONS (4)
  - HALLUCINATION, VISUAL [None]
  - DRUG DOSE OMISSION [None]
  - AGITATION [None]
  - INSOMNIA [None]
